FAERS Safety Report 13384152 (Version 1)
Quarter: 2017Q1

REPORT INFORMATION
  Report Type: Spontaneous
  Country: US (occurrence: US)
  Receive Date: 20170329
  Receipt Date: 20170329
  Transmission Date: 20170429
  Serious: No
  Sender: FDA-Public Use
  Company Number: US-MYLANLABS-2016M1009136

PATIENT
  Sex: Female

DRUGS (1)
  1. SELEGILINE [Suspect]
     Active Substance: SELEGILINE
     Dosage: UNK
     Route: 062

REACTIONS (1)
  - Withdrawal syndrome [Not Recovered/Not Resolved]
